FAERS Safety Report 15930026 (Version 2)
Quarter: 2019Q1

REPORT INFORMATION
  Report Type: Report from Study
  Country: None (occurrence: CA)
  Receive Date: 20190206
  Receipt Date: 20190226
  Transmission Date: 20190417
  Serious: Yes (Hospitalization, Other)
  Sender: FDA-Public Use
  Company Number: CA-ABBVIE-19K-028-2650072-00

PATIENT
  Sex: Female

DRUGS (2)
  1. HUMIRA [Suspect]
     Active Substance: ADALIMUMAB
     Route: 058
     Dates: start: 201901
  2. HUMIRA [Suspect]
     Active Substance: ADALIMUMAB
     Indication: ANKYLOSING SPONDYLITIS
     Route: 058
     Dates: start: 20180322, end: 201901

REACTIONS (6)
  - Arteriovenous fistula [Unknown]
  - Splenic artery aneurysm [Unknown]
  - Cardiac disorder [Unknown]
  - Post procedural complication [Unknown]
  - Splenic infarction [Unknown]
  - Respiratory tract infection viral [Not Recovered/Not Resolved]

NARRATIVE: CASE EVENT DATE: 2018
